FAERS Safety Report 9081306 (Version 1)
Quarter: 2013Q1

REPORT INFORMATION
  Report Type: Report from Study
  Country: US (occurrence: US)
  Receive Date: 20130130
  Receipt Date: 20130130
  Transmission Date: 20140127
  Serious: No
  Sender: FDA-Public Use
  Company Number: US-ABBOTT-12P-163-0917551-00

PATIENT
  Age: 24 Year
  Sex: Male

DRUGS (5)
  1. HUMIRA 40 MG/0.8 ML PEN [Suspect]
     Indication: CROHN^S DISEASE
     Dates: start: 20120307
  2. HUMIRA 40 MG/0.8 ML PEN [Suspect]
  3. TESTOSTERONE [Concomitant]
     Indication: BLOOD TESTOSTERONE DECREASED
     Dosage: GEL, DAILY
     Route: 061
  4. CALCIUM [Concomitant]
     Indication: MINERAL SUPPLEMENTATION
  5. VIT D [Concomitant]
     Indication: VITAMIN SUPPLEMENTATION

REACTIONS (4)
  - Device malfunction [Recovered/Resolved]
  - Injection site pain [Unknown]
  - Device malfunction [Recovered/Resolved]
  - Incorrect dose administered [Recovered/Resolved]
